FAERS Safety Report 11217203 (Version 2)
Quarter: 2015Q3

REPORT INFORMATION
  Report Type: Spontaneous
  Country: US (occurrence: US)
  Receive Date: 20150625
  Receipt Date: 20150702
  Transmission Date: 20151125
  Serious: No
  Sender: FDA-Public Use
  Company Number: US-ASTRAZENECA-2015SE61525

PATIENT
  Sex: Male
  Weight: 81.6 kg

DRUGS (5)
  1. TRICOR [Concomitant]
     Active Substance: FENOFIBRATE
  2. METFORMIN [Concomitant]
     Active Substance: METFORMIN HYDROCHLORIDE
  3. FARXIGA [Suspect]
     Active Substance: DAPAGLIFLOZIN PROPANEDIOL
     Indication: TYPE 2 DIABETES MELLITUS
     Route: 048
     Dates: start: 201502, end: 201506
  4. LIPITOR [Concomitant]
     Active Substance: ATORVASTATIN CALCIUM
  5. AMARYL [Concomitant]
     Active Substance: GLIMEPIRIDE

REACTIONS (3)
  - Hyperhidrosis [Unknown]
  - Weight decreased [Recovered/Resolved]
  - Nausea [Recovered/Resolved]
